FAERS Safety Report 9267059 (Version 1)
Quarter: 2013Q2

REPORT INFORMATION
  Report Type: Spontaneous
  Country: US (occurrence: US)
  Receive Date: 20130502
  Receipt Date: 20130502
  Transmission Date: 20140414
  Serious: No
  Sender: FDA-Public Use
  Company Number: US-PFIZER INC-2013134733

PATIENT
  Age: 38 Year
  Sex: Female
  Weight: 84.35 kg

DRUGS (10)
  1. FELDENE [Suspect]
     Indication: NERVE INJURY
     Dosage: UNK
     Dates: start: 2009
  2. FELDENE [Suspect]
     Indication: INFLAMMATION
     Dosage: 20 MG, DAILY
     Dates: start: 2011, end: 201302
  3. EFFEXOR [Suspect]
     Indication: COMPLEX REGIONAL PAIN SYNDROME
     Dosage: 75 MG, TWO TIMES A DAY
     Dates: start: 2009, end: 201302
  4. EFFEXOR [Suspect]
     Indication: ANXIETY
  5. EFFEXOR [Suspect]
     Indication: DEPRESSION
  6. ADRENALINE [Concomitant]
     Indication: ASTHMA
     Dosage: UNK, ONE PUFF FOUR TIMES A DAY
  7. HYDROCODONE [Concomitant]
     Indication: PAIN
     Dosage: 5/325 MG, THREE TIMES A DAY
  8. TRAZODONE [Concomitant]
     Indication: PAIN
     Dosage: 100 MG, DAILY
  9. TRAZODONE [Concomitant]
     Indication: SLEEP DISORDER
  10. OMEPRAZOLE [Concomitant]
     Indication: GASTROOESOPHAGEAL REFLUX DISEASE
     Dosage: 20 MG, DAILY

REACTIONS (1)
  - Sinusitis [Not Recovered/Not Resolved]
